FAERS Safety Report 9632293 (Version 2)
Quarter: 2013Q4

REPORT INFORMATION
  Report Type: Report from Study
  Country: DE (occurrence: DE)
  Receive Date: 20131018
  Receipt Date: 20131210
  Transmission Date: 20140711
  Serious: Yes (Other)
  Sender: FDA-Public Use
  Company Number: DE-TEVA-438196USA

PATIENT
  Age: 39 Year
  Sex: Female

DRUGS (3)
  1. BENDAMUSTINE [Suspect]
     Indication: B-CELL LYMPHOMA
     Route: 050
     Dates: start: 20130710
  2. RITUXIMAB [Concomitant]
     Dosage: EVERY 28 DAYS
     Route: 042
     Dates: start: 20130710
  3. ALLOPURINOL [Concomitant]
     Indication: PROPHYLAXIS

REACTIONS (2)
  - Dysaesthesia pharynx [Unknown]
  - Infusion site pruritus [Unknown]
